FAERS Safety Report 25539718 (Version 1)
Quarter: 2025Q3

REPORT INFORMATION
  Report Type: Report from Study
  Country: TR (occurrence: TR)
  Receive Date: 20250710
  Receipt Date: 20250710
  Transmission Date: 20251020
  Serious: Yes (Other)
  Sender: PFIZER
  Company Number: TR-PFIZER INC-PV202500081127

PATIENT

DRUGS (1)
  1. TOFACITINIB CITRATE [Suspect]
     Active Substance: TOFACITINIB CITRATE
     Indication: Scleroderma
     Dosage: UNK, DAILY (RANGED FROM 5 TO 10 MG, WITH A MEDIAN TREATMENT DURATION OF 6 (4-11) MONTHS)

REACTIONS (1)
  - Diffuse large B-cell lymphoma [Unknown]
